FAERS Safety Report 6181476-9 (Version None)
Quarter: 2009Q2

REPORT INFORMATION
  Report Type: 
  Country: None (occurrence: None)
  Receive Date: 20090501
  Receipt Date: 20090415
  Transmission Date: 20091009
  Serious: Yes (Other)
  Sender: FDA-Public Use
  Company Number: PAR_02955_2009

PATIENT
  Sex: Female

DRUGS (11)
  1. IBUPROFEN [Suspect]
     Indication: DRUG USE FOR UNKNOWN INDICATION
     Dosage: (1800 MG)
     Dates: start: 20090225, end: 20090303
  2. IBUPROFEN [Suspect]
     Indication: THROMBOSIS PROPHYLAXIS
     Dosage: (1800 MG)
     Dates: start: 20090225, end: 20090303
  3. RIVAROXABAN [Suspect]
     Indication: JOINT ARTHROPLASTY
     Dosage: (DF ORAL)
     Route: 048
     Dates: start: 20090224, end: 20090225
  4. TIMOLOL MALEATE [Concomitant]
  5. IODINE [Concomitant]
  6. PANTOPRAZOLE SODIUM [Concomitant]
  7. ZOPICLONE [Concomitant]
  8. METAMIZOLE SODIUM [Concomitant]
  9. CEFAZOLIN SODIUM [Concomitant]
  10. TUTOFUSIN [Concomitant]
  11. PIRITRAMIDE [Concomitant]

REACTIONS (3)
  - HAEMATOMA [None]
  - HAEMOGLOBIN DECREASED [None]
  - KNEE ARTHROPLASTY [None]
